FAERS Safety Report 7914338-4 (Version None)
Quarter: 2011Q4

REPORT INFORMATION
  Report Type: 
  Country: None (occurrence: None)
  Receive Date: 20111115
  Receipt Date: 20111107
  Transmission Date: 20120403
  Serious: Yes (Disabling)
  Sender: FDA-Public Use
  Company Number: US-PURDUE-USA-2010-0047386

PATIENT
  Sex: Male

DRUGS (1)
  1. OXYCONTIN [Suspect]
     Indication: PAIN
     Dosage: 160 MG, BID
     Route: 048
     Dates: start: 20100830, end: 20100910

REACTIONS (14)
  - MOBILITY DECREASED [None]
  - HYPOAESTHESIA [None]
  - ABDOMINAL PAIN UPPER [None]
  - HEADACHE [None]
  - PAIN [None]
  - VOMITING [None]
  - DRUG INEFFECTIVE [None]
  - FEELING ABNORMAL [None]
  - PAIN IN EXTREMITY [None]
  - GENERAL PHYSICAL HEALTH DETERIORATION [None]
  - CHEST PAIN [None]
  - DYSPNOEA [None]
  - DRUG WITHDRAWAL SYNDROME [None]
  - MALAISE [None]
